FAERS Safety Report 20304537 (Version 1)
Quarter: 2022Q1

REPORT INFORMATION
  Report Type: Report from Study
  Country: CA (occurrence: CA)
  Receive Date: 20220106
  Receipt Date: 20220106
  Transmission Date: 20220423
  Serious: Yes (Other)
  Sender: FDA-Public Use
  Company Number: CA-JNJFOC-20210631853

PATIENT
  Age: 32 Year
  Sex: Female
  Weight: 65.9 kg

DRUGS (2)
  1. REMICADE [Suspect]
     Active Substance: INFLIXIMAB
     Indication: Crohn^s disease
     Dosage: THE PATIENT RECEIVED LAST REMICADE INFUSION ON 29-DEC-2021
     Route: 042
     Dates: start: 20140610
  2. REMICADE [Suspect]
     Active Substance: INFLIXIMAB
     Route: 042
     Dates: start: 2019

REACTIONS (4)
  - Crohn^s disease [Unknown]
  - Fibromyalgia [Unknown]
  - Hypokinesia [Unknown]
  - COVID-19 [Unknown]

NARRATIVE: CASE EVENT DATE: 20210610
